FAERS Safety Report 22224869 (Version 2)
Quarter: 2023Q2

REPORT INFORMATION
  Report Type: Spontaneous
  Country: JP (occurrence: JP)
  Receive Date: 20230418
  Receipt Date: 20230503
  Transmission Date: 20230721
  Serious: Yes (Hospitalization, Other)
  Sender: FDA-Public Use
  Company Number: JP-JNJFOC-20230434235

PATIENT
  Age: 75 Year
  Sex: Female

DRUGS (7)
  1. DARATUMUMAB [Suspect]
     Active Substance: DARATUMUMAB
     Indication: Plasma cell myeloma
     Dosage: DOSE UNKNOWN
     Route: 058
     Dates: start: 20230228
  2. REVLIMID [Concomitant]
     Active Substance: LENALIDOMIDE
     Indication: Plasma cell myeloma
     Route: 048
     Dates: start: 20230228
  3. LENADEX [Concomitant]
     Active Substance: DEXAMETHASONE ACETATE
     Indication: Plasma cell myeloma
     Route: 065
     Dates: start: 20230228
  4. CILNIDIPINE [Concomitant]
     Active Substance: CILNIDIPINE
     Route: 065
  5. ASPIRIN [Concomitant]
     Active Substance: ASPIRIN
     Route: 065
  6. HERBALS [Concomitant]
     Active Substance: HERBALS
     Route: 065
  7. MAGNESIUM OXIDE [Concomitant]
     Active Substance: MAGNESIUM OXIDE
     Route: 065

REACTIONS (2)
  - Leukoencephalopathy [Recovering/Resolving]
  - Altered state of consciousness [Recovering/Resolving]

NARRATIVE: CASE EVENT DATE: 20230101
